FAERS Safety Report 6713862-X (Version None)
Quarter: 2010Q2

REPORT INFORMATION
  Report Type: 
  Country: None (occurrence: None)
  Receive Date: 20100503
  Receipt Date: 20100428
  Transmission Date: 20101027
  Serious: Yes (Life-Threatening, Hospitalization)
  Sender: FDA-Public Use
  Company Number: 2010SP024375

PATIENT
  Age: 75 Year
  Sex: Female

DRUGS (7)
  1. DESLORATADINE [Suspect]
     Indication: DRUG USE FOR UNKNOWN INDICATION
     Dosage: 5 MG; QD; PO
     Route: 048
     Dates: start: 20091218, end: 20100327
  2. EXJADE (ANTIDOTES) [Suspect]
     Indication: DRUG USE FOR UNKNOWN INDICATION
     Dosage: 2 DF; QD; PO
     Route: 048
     Dates: start: 20100316, end: 20100325
  3. NEORECORMON (EPOETIN BETA) [Suspect]
     Indication: DRUG USE FOR UNKNOWN INDICATION
  4. BETAHISTINE (BETAHISTINE /00141801/) [Suspect]
     Indication: DRUG USE FOR UNKNOWN INDICATION
     Dosage: 8 MG; QD; PO
     Route: 048
     Dates: end: 20100327
  5. EFFERALGAN (PARACETAMOL /00020001/) [Suspect]
     Indication: DRUG USE FOR UNKNOWN INDICATION
     Dosage: 1 GM; PRN; PO
     Route: 048
     Dates: end: 20100327
  6. FLUIDABAK (POLYVIDONE) [Suspect]
     Indication: DRUG USE FOR UNKNOWN INDICATION
     Dosage: ; OPH
     Route: 047
     Dates: start: 20091218, end: 20100327
  7. CROMABAK (CROMOGLICATE SODIUM) [Suspect]
     Indication: DRUG USE FOR UNKNOWN INDICATION
     Dosage: ; OPH
     Route: 047
     Dates: start: 20091218, end: 20100327

REACTIONS (22)
  - ABDOMINAL PAIN [None]
  - ALANINE AMINOTRANSFERASE INCREASED [None]
  - ASPARTATE AMINOTRANSFERASE INCREASED [None]
  - BLOOD BILIRUBIN INCREASED [None]
  - BLOOD CREATINE INCREASED [None]
  - CARDIAC ARREST [None]
  - CEREBRAL ISCHAEMIA [None]
  - CONFUSIONAL STATE [None]
  - DIARRHOEA [None]
  - DRUG RASH WITH EOSINOPHILIA AND SYSTEMIC SYMPTOMS [None]
  - DRY MOUTH [None]
  - EYELID OEDEMA [None]
  - GASTROINTESTINAL DISORDER [None]
  - HAEMOGLOBIN DECREASED [None]
  - HYPOTENSION [None]
  - HYPOXIA [None]
  - LIP SWELLING [None]
  - METABOLIC ACIDOSIS [None]
  - PYREXIA [None]
  - SEPTIC SHOCK [None]
  - SWELLING FACE [None]
  - SWOLLEN TONGUE [None]
